FAERS Safety Report 6641263-1 (Version None)
Quarter: 2010Q1

REPORT INFORMATION
  Report Type: 
  Country: None (occurrence: None)
  Receive Date: 20100318
  Receipt Date: 20100316
  Transmission Date: 20100710
  Serious: Yes (Hospitalization, Disabling, Other)
  Sender: FDA-Public Use
  Company Number: US-ROXANE LABORATORIES, INC.-2010-RO-00267RO

PATIENT
  Age: 49 Year
  Sex: Male

DRUGS (10)
  1. METHOTREXATE [Suspect]
     Indication: PSORIATIC ARTHROPATHY
  2. MORPHINE [Suspect]
     Indication: CHEST PAIN
  3. INFLIXIMAB [Suspect]
     Indication: PSORIATIC ARTHROPATHY
  4. ASPIRIN [Suspect]
     Indication: CHEST PAIN
  5. OXYGEN [Suspect]
     Indication: CHEST PAIN
  6. VANCOMYCIN [Suspect]
     Indication: STAPHYLOCOCCAL INFECTION
     Route: 042
  7. GENTAMICIN [Suspect]
     Indication: EVIDENCE BASED TREATMENT
     Route: 042
  8. DEXAMETHASONE [Concomitant]
     Indication: EXTRADURAL ABSCESS
     Route: 042
  9. CEFAZOLIN [Concomitant]
     Indication: EXTRADURAL ABSCESS
  10. RIFAMPIN [Concomitant]
     Indication: EXTRADURAL ABSCESS

REACTIONS (7)
  - CHEST PAIN [None]
  - EXTRADURAL ABSCESS [None]
  - MUSCLE CONTRACTIONS INVOLUNTARY [None]
  - PAIN [None]
  - PARAPLEGIA [None]
  - STAPHYLOCOCCAL INFECTION [None]
  - URINARY RETENTION [None]
